FAERS Safety Report 17025067 (Version 1)
Quarter: 2019Q4

REPORT INFORMATION
  Report Type: Spontaneous
  Country: US (occurrence: US)
  Receive Date: 20191113
  Receipt Date: 20191113
  Transmission Date: 20200122
  Serious: No
  Sender: FDA-Public Use
  Company Number: US-AMGEN-USASP2019185009

PATIENT
  Sex: Female

DRUGS (1)
  1. REPATHA [Suspect]
     Active Substance: EVOLOCUMAB
     Indication: PRODUCT USED FOR UNKNOWN INDICATION
     Dosage: 140 MILLIGRAM, Q2WK
     Route: 065
     Dates: start: 20191026

REACTIONS (6)
  - Back pain [Unknown]
  - Musculoskeletal pain [Unknown]
  - Rhinorrhoea [Unknown]
  - Fatigue [Unknown]
  - Arthralgia [Unknown]
  - Tendonitis [Unknown]

NARRATIVE: CASE EVENT DATE: 2019
